FAERS Safety Report 16771547 (Version 3)
Quarter: 2019Q3

REPORT INFORMATION
  Report Type: Spontaneous
  Country: US (occurrence: US)
  Receive Date: 20190904
  Receipt Date: 20190930
  Transmission Date: 20191005
  Serious: No
  Sender: FDA-Public Use
  Company Number: US-PFIZER INC-2019377321

PATIENT
  Age: 73 Year
  Sex: Female
  Weight: 37.19 kg

DRUGS (3)
  1. COLESTIPOL HCL [Suspect]
     Active Substance: COLESTIPOL HYDROCHLORIDE
     Indication: MALABSORPTION
     Dosage: UNK
     Dates: start: 2018
  2. COLESTIPOL HCL [Suspect]
     Active Substance: COLESTIPOL HYDROCHLORIDE
     Indication: CHOLECYSTECTOMY
     Dosage: TWICE A DAY (15GRAMS PACKET AFTER BREAKFAST AND 1 TEASPOON AFTER DINNER)
     Dates: start: 2006
  3. COLESTIPOL HCL [Suspect]
     Active Substance: COLESTIPOL HYDROCHLORIDE
     Indication: BILE OUTPUT ABNORMAL
     Dosage: TWICE A DAY (UP TO 1 PACK TWICE A DAY/ 1 TEASPOON TWICE A DAY/ 15GR PKT AFTER BREAKFAST AND 1 TSP A)
     Dates: start: 2012

REACTIONS (1)
  - Drug ineffective [Recovered/Resolved]

NARRATIVE: CASE EVENT DATE: 201907
